FAERS Safety Report 5411610-7 (Version None)
Quarter: 2007Q3

REPORT INFORMATION
  Report Type: 
  Country: None (occurrence: None)
  Receive Date: 20070810
  Receipt Date: 20070731
  Transmission Date: 20080115
  Serious: Yes (Other)
  Sender: FDA-Public Use
  Company Number: US-PFIZER INC-2007064157

PATIENT
  Sex: Male

DRUGS (1)
  1. LIPITOR [Suspect]

REACTIONS (6)
  - DYSKINESIA [None]
  - GAIT DISTURBANCE [None]
  - HALLUCINATION [None]
  - MENTAL IMPAIRMENT [None]
  - NERVOUSNESS [None]
  - SPEECH DISORDER [None]
